FAERS Safety Report 11936329 (Version 1)
Quarter: 2016Q1

REPORT INFORMATION
  Report Type: Report from Study
  Country: BR (occurrence: BR)
  Receive Date: 20160121
  Receipt Date: 20160121
  Transmission Date: 20160526
  Serious: Yes (Other)
  Sender: FDA-Public Use
  Company Number: BR-ABBVIE-16K-020-1538997-00

PATIENT
  Sex: Male
  Weight: 53 kg

DRUGS (8)
  1. ALENDRONATE [Concomitant]
     Active Substance: ALENDRONATE SODIUM
     Indication: PSORIATIC ARTHROPATHY
     Route: 048
     Dates: start: 2008
  2. CALCIUM CARBONATE. [Concomitant]
     Active Substance: CALCIUM CARBONATE
     Indication: PSORIATIC ARTHROPATHY
     Route: 048
     Dates: start: 2008
  3. DEFLAZACORT [Concomitant]
     Active Substance: DEFLAZACORT
     Indication: PSORIATIC ARTHROPATHY
     Route: 048
     Dates: start: 2008
  4. HUMIRA [Suspect]
     Active Substance: ADALIMUMAB
     Indication: PSORIATIC ARTHROPATHY
     Route: 058
     Dates: start: 20130101
  5. METHOTREXATE [Concomitant]
     Active Substance: METHOTREXATE
     Indication: PSORIATIC ARTHROPATHY
     Route: 048
     Dates: start: 2008
  6. PREDNISONE. [Concomitant]
     Active Substance: PREDNISONE
     Indication: PSORIATIC ARTHROPATHY
  7. HUMIRA [Suspect]
     Active Substance: ADALIMUMAB
     Route: 058
  8. PREDNISONE. [Concomitant]
     Active Substance: PREDNISONE
     Indication: PAIN
     Dosage: 1 IN 1
     Route: 048
     Dates: start: 2008

REACTIONS (6)
  - Eye disorder [Recovered/Resolved]
  - Joint swelling [Recovered/Resolved]
  - Visual impairment [Recovered/Resolved]
  - Eye operation [Recovered/Resolved]
  - Eye operation [Recovered/Resolved]
  - Arthralgia [Recovered/Resolved]

NARRATIVE: CASE EVENT DATE: 2013
